FAERS Safety Report 11986763 (Version 1)
Quarter: 2016Q1

REPORT INFORMATION
  Report Type: Spontaneous
  Country: US (occurrence: US)
  Receive Date: 20160202
  Receipt Date: 20160202
  Transmission Date: 20160526
  Serious: No
  Sender: FDA-Public Use
  Company Number: US-UCBSA-2015006583

PATIENT
  Age: 20 Year
  Sex: Female
  Weight: 70 kg

DRUGS (2)
  1. TOPAMAX [Concomitant]
     Active Substance: TOPIRAMATE
     Indication: SEIZURE
     Dosage: 200 MG, UNK
     Route: 048
     Dates: start: 20090203
  2. KEPPRA [Suspect]
     Active Substance: LEVETIRACETAM
     Indication: SEIZURE
     Dosage: 500 MG, 2X/DAY (BID)
     Dates: start: 20150124, end: 20150226

REACTIONS (2)
  - Abnormal behaviour [Recovering/Resolving]
  - Psychotic disorder [Unknown]

NARRATIVE: CASE EVENT DATE: 201502
